FAERS Safety Report 16537085 (Version 4)
Quarter: 2020Q3

REPORT INFORMATION
  Report Type: Spontaneous
  Country: DE (occurrence: DE)
  Receive Date: 20190707
  Receipt Date: 20200707
  Transmission Date: 20201102
  Serious: Yes (Life-Threatening, Hospitalization)
  Sender: FDA-Public Use
  Company Number: PHHY2019DE151307

PATIENT
  Age: 21 Year
  Sex: Male

DRUGS (1)
  1. RISPERIDONE. [Suspect]
     Active Substance: RISPERIDONE
     Indication: SCHIZOPHRENIA
     Dosage: UNK
     Route: 065

REACTIONS (14)
  - Aspartate aminotransferase increased [Recovered/Resolved]
  - Alanine aminotransferase increased [Recovered/Resolved]
  - Blood creatine phosphokinase increased [Recovering/Resolving]
  - Rhabdomyolysis [Recovered/Resolved]
  - Blood lactate dehydrogenase increased [Recovering/Resolving]
  - Multiple organ dysfunction syndrome [Recovered/Resolved]
  - Blood creatinine increased [Recovered/Resolved]
  - Hepatic encephalopathy [Recovered/Resolved]
  - Anuria [Recovering/Resolving]
  - Azotaemia [Recovering/Resolving]
  - Hepatic failure [Recovered/Resolved]
  - Myoglobin blood increased [Recovered/Resolved]
  - Acute kidney injury [Recovered/Resolved]
  - Hyperkalaemia [Recovered/Resolved]
